FAERS Safety Report 25205650 (Version 3)
Quarter: 2025Q2

REPORT INFORMATION
  Report Type: Spontaneous
  Country: JP (occurrence: JP)
  Receive Date: 20250417
  Receipt Date: 20250521
  Transmission Date: 20250717
  Serious: Yes (Other)
  Sender: GALDERMA
  Company Number: JP-GALDERMA-JP2025005629

PATIENT

DRUGS (2)
  1. NEMOLIZUMAB [Suspect]
     Active Substance: NEMOLIZUMAB
     Indication: Dermatitis atopic
     Route: 058
  2. NEMOLIZUMAB [Suspect]
     Active Substance: NEMOLIZUMAB
     Route: 058

REACTIONS (2)
  - Acute generalised exanthematous pustulosis [Recovered/Resolved]
  - Erythema [Recovered/Resolved]
